FAERS Safety Report 25020686 (Version 1)
Quarter: 2025Q1

REPORT INFORMATION
  Report Type: Spontaneous
  Country: US (occurrence: US)
  Receive Date: 20250227
  Receipt Date: 20250227
  Transmission Date: 20250409
  Serious: No
  Sender: GALDERMA
  Company Number: US-GALDERMA-US2025001666

PATIENT

DRUGS (1)
  1. NEMLUVIO [Suspect]
     Active Substance: NEMOLIZUMAB-ILTO
     Indication: Neurodermatitis
     Route: 058
     Dates: start: 202501

REACTIONS (5)
  - Pruritus [Unknown]
  - Sleep disorder [Unknown]
  - Pain of skin [Unknown]
  - Back pain [Unknown]
  - Pulmonary pain [Unknown]

NARRATIVE: CASE EVENT DATE: 20250101
